FAERS Safety Report 6163552-X (Version None)
Quarter: 2009Q2

REPORT INFORMATION
  Report Type: 
  Country: None (occurrence: None)
  Receive Date: 20090420
  Receipt Date: 20080515
  Transmission Date: 20091009
  Serious: Yes (Hospitalization)
  Sender: FDA-Public Use
  Company Number: SPV1-2008-00866

PATIENT
  Age: 54 Year
  Sex: Female
  Weight: 54.9 kg

DRUGS (5)
  1. LIALDA [Suspect]
     Indication: CROHN'S DISEASE
     Dosage: 2.4 G, 2X/DAY:BID, ORAL
     Route: 048
     Dates: start: 20080201, end: 20080216
  2. ASMANEX TWISTHALER [Concomitant]
  3. CALCIUM WITH VITAMIN D (CALCIUM CARBONATE, COLECALCIFEROL) [Concomitant]
  4. NEXIUM [Concomitant]
  5. SINGULAIR [Concomitant]

REACTIONS (1)
  - DRUG TOXICITY [None]
